FAERS Safety Report 9288754 (Version 1)
Quarter: 2013Q2

REPORT INFORMATION
  Report Type: Spontaneous
  Country: US (occurrence: US)
  Receive Date: 20130514
  Receipt Date: 20130514
  Transmission Date: 20140414
  Serious: No
  Sender: FDA-Public Use
  Company Number: US-OPTIMER-20110060

PATIENT
  Age: 61 Year
  Sex: Female

DRUGS (10)
  1. DIFICID [Suspect]
     Indication: CLOSTRIDIUM DIFFICILE COLITIS
     Dosage: 200 MG, BID
     Route: 048
     Dates: start: 20111109, end: 20111120
  2. BACLOFEN [Concomitant]
     Dosage: UNK
  3. FOSAMAX [Concomitant]
     Dosage: UNK
  4. VALIUM [Concomitant]
     Dosage: UNK
  5. MULTIVITAMIN [Concomitant]
     Dosage: UNK
  6. VITAMIN D NOS [Concomitant]
     Dosage: UNK
  7. FISH OIL [Concomitant]
     Dosage: UNK
  8. CITRACAL [Concomitant]
     Dosage: UNK
  9. MACROBID [Concomitant]
     Indication: URINARY TRACT INFECTION
     Dosage: 100 MG, HS
     Route: 048
     Dates: start: 201201
  10. MOM [Concomitant]
     Dosage: 2-3 TIMES PER WEEK
     Route: 048
     Dates: start: 20120409

REACTIONS (9)
  - Clostridium difficile colitis [Not Recovered/Not Resolved]
  - Disease recurrence [Not Recovered/Not Resolved]
  - Faecal incontinence [Recovered/Resolved]
  - Gastrointestinal pain [Recovered/Resolved]
  - Anorectal discomfort [Recovered/Resolved]
  - Abnormal faeces [Recovered/Resolved]
  - Painful defaecation [Recovered/Resolved]
  - Mucous stools [Not Recovered/Not Resolved]
  - Malaise [Not Recovered/Not Resolved]
